FAERS Safety Report 21136876 (Version 1)
Quarter: 2022Q3

REPORT INFORMATION
  Report Type: Spontaneous
  Country: US (occurrence: None)
  Receive Date: 20220726
  Receipt Date: 20220726
  Transmission Date: 20221027
  Serious: No
  Sender: FDA-Public Use
  Company Number: None

PATIENT
  Age: 61 Year
  Sex: Female

DRUGS (1)
  1. TARGRETIN [Suspect]
     Active Substance: BEXAROTENE
     Dosage: FREQUENCY : DAILY;?
     Route: 048

REACTIONS (8)
  - Nephrolithiasis [None]
  - Fall [None]
  - Blood urine present [None]
  - Renal disorder [None]
  - Fatigue [None]
  - Chest discomfort [None]
  - Peripheral swelling [None]
  - Flushing [None]

NARRATIVE: CASE EVENT DATE: 20220726
